FAERS Safety Report 10237060 (Version 1)
Quarter: 2014Q1

REPORT INFORMATION
  Report Type: Spontaneous
  Country: US (occurrence: None)
  Receive Date: 20140306
  Receipt Date: 20140306
  Transmission Date: 20141002
  Serious: Yes (Other)
  Sender: FDA-Public Use
  Company Number: 163-21880-12122567

PATIENT
  Age: 80 Year
  Sex: Female

DRUGS (6)
  1. REVLIMID (LENALIDOMIDE) (25 MILLIGRAM, CAPSULES) [Suspect]
     Indication: PLASMA CELL MYELOMA
     Dosage: 25 MG, 21 IN 21 D, PO?05-DEC-2012 - PERMANENTLY DISCONTINUED
     Route: 048
     Dates: start: 20121205
  2. ASPIRIN CHILDRENS (ACETYLSALICYLIC ACID) (UNKNOWN) [Concomitant]
  3. IRON (IRON) (UNKNOWN) [Concomitant]
  4. LOSARTAN (LOSARTAN) (UNKNOWN) [Concomitant]
  5. POTASSIUM (POTASSIUM) (UNKNOWN) [Concomitant]
  6. ONE-A-DAY WOMENS PETITES (ONE A DAY WOMEN^S) (UNKNOWN) [Concomitant]

REACTIONS (2)
  - Drug ineffective [None]
  - Musculoskeletal stiffness [None]
